FAERS Safety Report 5499180-9 (Version None)
Quarter: 2007Q4

REPORT INFORMATION
  Report Type: 
  Country: None (occurrence: None)
  Receive Date: 20071026
  Receipt Date: 20071018
  Transmission Date: 20080405
  Serious: Yes (Other)
  Sender: FDA-Public Use
  Company Number: ES-ASTRAZENECA-2007AC02022

PATIENT
  Age: 63 Year
  Sex: Female

DRUGS (1)
  1. SYMBICORT [Suspect]
     Indication: ASTHMA
     Dosage: 160/4.5
     Route: 055
     Dates: start: 20070806, end: 20070807

REACTIONS (3)
  - DYSPNOEA [None]
  - FACE OEDEMA [None]
  - LOCALISED OEDEMA [None]
